FAERS Safety Report 4319576-8 (Version None)
Quarter: 2004Q1

REPORT INFORMATION
  Report Type: 
  Country: None (occurrence: None)
  Receive Date: 20040319
  Receipt Date: 20031201
  Transmission Date: 20041129
  Serious: Yes (Hospitalization)
  Sender: FDA-Public Use
  Company Number: FR-ROCHE-353191

PATIENT
  Age: 26 Year
  Sex: Male
  Weight: 70 kg

DRUGS (12)
  1. CELLCEPT [Suspect]
     Route: 048
  2. CELLCEPT [Suspect]
     Route: 048
     Dates: start: 20030913
  3. CELLCEPT [Suspect]
     Route: 048
  4. PROGRAF [Suspect]
     Indication: IMMUNOSUPPRESSION
     Dosage: TACROLIMUS WAS STARTED AFTER THE GRAFT REJECTION
     Route: 048
     Dates: start: 20031009
  5. SOLUPRED [Suspect]
     Indication: DRUG USE FOR UNKNOWN INDICATION
     Route: 048
     Dates: start: 20030913
  6. THYMOGLOBULIN [Concomitant]
     Route: 065
     Dates: start: 20031015
  7. CORTICOSTEROIDS [Concomitant]
     Dosage: DOSAGE WAS INCREASED AFTER THE GRAFT REJECTION
     Route: 065
     Dates: start: 20031015
  8. AMLOR [Concomitant]
     Indication: HYPERTENSION
     Route: 048
     Dates: start: 20030926
  9. TENORMIN [Concomitant]
     Indication: HYPERTENSION
     Route: 048
     Dates: start: 20031002
  10. MOPRAL [Concomitant]
     Indication: PROPHYLAXIS
     Route: 048
     Dates: start: 20030914
  11. ZOVIRAX [Concomitant]
     Indication: PROPHYLAXIS
     Route: 048
     Dates: start: 20030913
  12. RAPAMUNE [Concomitant]

REACTIONS (4)
  - APLASIA PURE RED CELL [None]
  - BIOPSY KIDNEY ABNORMAL [None]
  - ERYTHEMA INFECTIOSUM [None]
  - TRANSPLANT REJECTION [None]
